FAERS Safety Report 20026972 (Version 4)
Quarter: 2022Q1

REPORT INFORMATION
  Report Type: Report from Study
  Country: DE (occurrence: DE)
  Receive Date: 20211103
  Receipt Date: 20220331
  Transmission Date: 20220424
  Serious: Yes (Hospitalization, Other)
  Sender: FDA-Public Use
  Company Number: DE-BRISTOL-MYERS SQUIBB COMPANY-BMS-2021-090373

PATIENT
  Sex: Male
  Weight: 106 kg

DRUGS (18)
  1. NIVOLUMAB [Suspect]
     Active Substance: NIVOLUMAB
     Indication: Renal cell carcinoma
     Dosage: 240 MILLIGRAM
     Route: 065
     Dates: start: 20210705
  2. CABOZANTINIB [Suspect]
     Active Substance: CABOZANTINIB
     Indication: Renal cell carcinoma
     Dosage: 40 MILLIGRAM
     Route: 065
     Dates: start: 20210707
  3. CABOZANTINIB [Suspect]
     Active Substance: CABOZANTINIB
     Dosage: 40 MILLIGRAM
     Route: 065
     Dates: start: 20210707
  4. NIVOLUMAB [Suspect]
     Active Substance: NIVOLUMAB
     Indication: Renal cell carcinoma
     Dosage: 240 MILLIGRAM
     Route: 065
     Dates: start: 20210705
  5. Tantum-Verde-Spray [Concomitant]
     Indication: Product used for unknown indication
     Route: 065
     Dates: start: 20210901
  6. METAMIZOLE [Concomitant]
     Active Substance: METAMIZOLE
     Indication: Product used for unknown indication
     Dosage: 500 MILLIGRAM, FOUR TIMES A DAY
     Dates: start: 20211002
  7. METAMIZOLE [Concomitant]
     Active Substance: METAMIZOLE
     Dosage: 500 MILLIGRAM,FOUR TIMES A DAY
     Route: 065
     Dates: start: 20211002
  8. AMPHO-MORONAL [Concomitant]
     Active Substance: AMPHOTERICIN B
     Indication: Product used for unknown indication
     Dosage: 10 MILLIGRAM, PM
     Route: 048
     Dates: start: 20211004
  9. AMPHO-MORONAL [Concomitant]
     Active Substance: AMPHOTERICIN B
     Dosage: 10 MILLIGRAM, PRN
     Route: 048
     Dates: start: 20211004
  10. RECESSAN [Concomitant]
     Indication: Product used for unknown indication
  11. RECESSAN [Concomitant]
     Dosage: PM, AS NEEDED
     Route: 048
     Dates: start: 20211004
  12. ELACUTAN [Concomitant]
     Indication: Product used for unknown indication
  13. ELACUTAN [Concomitant]
     Dosage: PM, AS NEEDED
     Route: 061
     Dates: start: 20211026
  14. NYSTATIN [Concomitant]
     Active Substance: NYSTATIN
     Indication: Product used for unknown indication
  15. NYSTATIN [Concomitant]
     Active Substance: NYSTATIN
     Dosage: DOSE NOT REPORTED, ML, 4 TIMES A DAY
     Route: 048
     Dates: start: 20211027
  16. LEVOTHYROXINE SODIUM [Concomitant]
     Active Substance: LEVOTHYROXINE SODIUM
     Indication: Product used for unknown indication
     Dosage: UNK
  17. MAGNESIUM VERLA [MAGNESIUM] [Concomitant]
     Indication: Product used for unknown indication
     Dosage: UNK
  18. BENZYDAMINE HYDROCHLORIDE [Concomitant]
     Active Substance: BENZYDAMINE HYDROCHLORIDE
     Indication: Product used for unknown indication
     Dosage: PM, AS NEEDED
     Route: 048
     Dates: start: 20210901

REACTIONS (9)
  - Cholecystitis acute [Recovered/Resolved]
  - Malaise [Recovered/Resolved]
  - Immune-mediated thyroiditis [Unknown]
  - Muscle spasms [Recovered/Resolved]
  - Abnormal loss of weight [Unknown]
  - Diarrhoea [Unknown]
  - Hypertension [Unknown]
  - Stomatitis [Unknown]
  - Palmar-plantar erythrodysaesthesia syndrome [Unknown]

NARRATIVE: CASE EVENT DATE: 20210731
